APPROVED DRUG PRODUCT: RISPERIDONE
Active Ingredient: RISPERIDONE
Strength: 4MG
Dosage Form/Route: TABLET;ORAL
Application: A078528 | Product #006 | TE Code: AB
Applicant: SANDOZ INC
Approved: Oct 16, 2009 | RLD: No | RS: No | Type: RX